FAERS Safety Report 13224586 (Version 3)
Quarter: 2017Q1

REPORT INFORMATION
  Report Type: Spontaneous
  Country: IT (occurrence: IT)
  Receive Date: 20170213
  Receipt Date: 20170222
  Transmission Date: 20170428
  Serious: Yes (Other)
  Sender: FDA-Public Use
  Company Number: IT-SUN PHARMACEUTICAL INDUSTRIES LTD-2017RR-132886

PATIENT
  Age: 78 Year
  Sex: Female

DRUGS (5)
  1. BRUFEN [Concomitant]
     Active Substance: IBUPROFEN
     Indication: CANCER PAIN
     Dosage: UNK
     Route: 048
  2. AULIN [Concomitant]
     Active Substance: NIMESULIDE
     Indication: CANCER PAIN
     Dosage: UNK
     Route: 065
  3. CETUXIMAB. [Suspect]
     Active Substance: CETUXIMAB
     Indication: HEAD AND NECK CANCER METASTATIC
     Dosage: UNK
     Route: 042
     Dates: start: 20160317, end: 20160317
  4. FENTANIL ACTAVIS [Concomitant]
     Indication: CANCER PAIN
     Dosage: UNK
     Route: 062
  5. LANSOPRAZOLE. [Suspect]
     Active Substance: LANSOPRAZOLE
     Indication: HEAD AND NECK CANCER METASTATIC
     Dosage: UNK
     Route: 048
     Dates: start: 20160317, end: 20160317

REACTIONS (2)
  - Urticaria [Recovered/Resolved]
  - Loss of consciousness [Recovered/Resolved]

NARRATIVE: CASE EVENT DATE: 20160317
